FAERS Safety Report 22630020 (Version 3)
Quarter: 2023Q4

REPORT INFORMATION
  Report Type: Spontaneous
  Country: US (occurrence: US)
  Receive Date: 20230622
  Receipt Date: 20231102
  Transmission Date: 20240109
  Serious: Yes (Hospitalization)
  Sender: FDA-Public Use
  Company Number: US-PARI RESPIRATORY EQUIPMENT, INC.-2023PAR00029

PATIENT
  Sex: Male
  Weight: 80.272 kg

DRUGS (2)
  1. KITABIS PAK [Suspect]
     Active Substance: TOBRAMYCIN
     Indication: Pneumonia pseudomonal
     Dosage: 300 MG/5 ML, 2X/DAY FOR ONE MONTH THEN OFF FOR ONE MONTH
  2. KITABIS PAK [Suspect]
     Active Substance: TOBRAMYCIN
     Indication: Bronchiectasis
     Dosage: 300 MG/5 ML, 2X/DAY FOR ONE MONTH THEN OFF FOR ONE MONTH

REACTIONS (5)
  - Blood gases abnormal [Recovering/Resolving]
  - Respiratory disorder [Recovered/Resolved]
  - Chronic obstructive pulmonary disease [Recovering/Resolving]
  - Infection [Unknown]
  - Off label use [Unknown]

NARRATIVE: CASE EVENT DATE: 20230101
